FAERS Safety Report 18641372 (Version 1)
Quarter: 2020Q4

REPORT INFORMATION
  Report Type: Spontaneous
  Country: US (occurrence: US)
  Receive Date: 20201221
  Receipt Date: 20201221
  Transmission Date: 20210114
  Serious: No
  Sender: FDA-Public Use
  Company Number: US-ALLERGAN-2018757US

PATIENT
  Sex: Female

DRUGS (3)
  1. BYSTOLIC [Suspect]
     Active Substance: NEBIVOLOL HYDROCHLORIDE
     Dosage: 5 MG, QD
     Route: 048
  2. BYSTOLIC [Suspect]
     Active Substance: NEBIVOLOL HYDROCHLORIDE
     Indication: HYPERTENSION
     Dosage: 1/4 OF 2.5 MG TABLET QD
     Route: 048
  3. BYSTOLIC [Suspect]
     Active Substance: NEBIVOLOL HYDROCHLORIDE
     Dosage: 10 MG, QD
     Route: 048

REACTIONS (7)
  - Initial insomnia [Unknown]
  - Product lot number issue [Unknown]
  - Insomnia [Not Recovered/Not Resolved]
  - Patient dissatisfaction with treatment [Unknown]
  - Heart rate decreased [Unknown]
  - Drug ineffective [Unknown]
  - Product expiration date issue [Unknown]
